FAERS Safety Report 6571904-9 (Version None)
Quarter: 2010Q1

REPORT INFORMATION
  Report Type: 
  Country: None (occurrence: None)
  Receive Date: 20100205
  Receipt Date: 20100127
  Transmission Date: 20100710
  Serious: Yes (Death, Other)
  Sender: FDA-Public Use
  Company Number: US-ROCHE-668067

PATIENT
  Sex: Female
  Weight: 78 kg

DRUGS (12)
  1. CAPECITABINE [Suspect]
     Indication: GASTRIC CANCER
     Dosage: 14 DAYS CYCLE X 3 CYCLES
     Route: 048
     Dates: start: 20090903, end: 20091112
  2. ACETAMINOPHEN AND CODEINE PHOSPHATE [Concomitant]
     Dosage: 300 MG-15 MG; Q4H SCHEDULED/PRN
     Route: 048
  3. CIPRO [Concomitant]
     Route: 048
  4. COMPAZINE [Concomitant]
     Dosage: 4 TIMES A DAY; PRN
     Route: 048
  5. ZOFRAN [Concomitant]
     Dosage: FREQ: Q12
     Route: 048
  6. LEVOXYL [Concomitant]
     Dosage: DOSE 2 TABLETS
     Route: 048
  7. RESTASIS [Concomitant]
     Dosage: ROUTE: EYES; BOTH, Q12
     Route: 047
  8. TENORMIN [Concomitant]
     Dosage: EVERY MORNING
     Route: 048
  9. BENICAR HCT [Concomitant]
     Dosage: EVERY MORNING
     Route: 048
  10. NORVASC [Concomitant]
     Route: 048
  11. LIPITOR [Concomitant]
     Route: 048
  12. ALEVE (CAPLET) [Concomitant]
     Dosage: DRUG: ALEVE CAPLET SODIUM; FREQ: Q8, PRN
     Route: 048

REACTIONS (9)
  - ASCITES [None]
  - DECREASED APPETITE [None]
  - FLUID RETENTION [None]
  - GASTROOESOPHAGEAL REFLUX DISEASE [None]
  - GENERALISED OEDEMA [None]
  - MALIGNANT NEOPLASM PROGRESSION [None]
  - NEOPLASM MALIGNANT [None]
  - PLEURAL EFFUSION [None]
  - WEIGHT INCREASED [None]
